FAERS Safety Report 14314606 (Version 1)
Quarter: 2017Q4

REPORT INFORMATION
  Report Type: Report from Study
  Country: None (occurrence: US)
  Receive Date: 20171221
  Receipt Date: 20171221
  Transmission Date: 20180321
  Serious: Yes (Hospitalization, Other)
  Sender: FDA-Public Use
  Company Number: US-VIFOR (INTERNATIONAL) INC.-VIT-2017-09611

PATIENT
  Age: 82 Year
  Sex: Female

DRUGS (13)
  1. PROLIA [Concomitant]
     Active Substance: DENOSUMAB
  2. GAVILYTE G [Concomitant]
     Active Substance: POLYETHYLENE GLYCOL 3350\POTASSIUM CHLORIDE\SODIUM BICARBONATE\SODIUM CHLORIDE\SODIUM SULFATE ANHYDROUS
  3. RENVELA [Concomitant]
     Active Substance: SEVELAMER CARBONATE
  4. VELTASSA [Suspect]
     Active Substance: PATIROMER
     Indication: HYPERKALAEMIA
     Route: 048
     Dates: start: 201609
  5. ASPIRIN. [Concomitant]
     Active Substance: ASPIRIN
  6. LEVOTHYROXINE. [Concomitant]
     Active Substance: LEVOTHYROXINE
  7. TUMS [Concomitant]
     Active Substance: CALCIUM CARBONATE
  8. AMLODIPINE [Concomitant]
     Active Substance: AMLODIPINE BESYLATE
  9. LASIX [Concomitant]
     Active Substance: FUROSEMIDE
  10. VELTASSA [Suspect]
     Active Substance: PATIROMER
     Route: 048
     Dates: start: 201611
  11. CLONIDINE. [Concomitant]
     Active Substance: CLONIDINE
  12. COLECALCIFEROL [Concomitant]
     Active Substance: CHOLECALCIFEROL
  13. METOPROLOL. [Concomitant]
     Active Substance: METOPROLOL

REACTIONS (4)
  - Arteriovenous fistula occlusion [Unknown]
  - Arthritis [Unknown]
  - Dialysis related complication [Recovered/Resolved]
  - End stage renal disease [Unknown]

NARRATIVE: CASE EVENT DATE: 20170909
